FAERS Safety Report 6081783-4 (Version None)
Quarter: 2009Q1

REPORT INFORMATION
  Report Type: 
  Country: None (occurrence: None)
  Receive Date: 20090218
  Receipt Date: 20090212
  Transmission Date: 20090719
  Serious: Yes (Death)
  Sender: FDA-Public Use
  Company Number: ES-BAYER-200715649GDS

PATIENT
  Age: 66 Year
  Sex: Male

DRUGS (1)
  1. ACTIRA [Suspect]
     Indication: BRONCHITIS
     Dosage: TOTAL DAILY DOSE: 400 MG  UNIT DOSE: 400 MG
     Route: 048
     Dates: start: 20070904, end: 20070904

REACTIONS (8)
  - ANAPHYLACTIC SHOCK [None]
  - ASPHYXIA [None]
  - CAROTID PULSE DECREASED [None]
  - CYANOSIS [None]
  - FACE OEDEMA [None]
  - LOCALISED OEDEMA [None]
  - RESPIRATORY ARREST [None]
  - SYNCOPE [None]
